FAERS Safety Report 10244660 (Version 1)
Quarter: 2014Q2

REPORT INFORMATION
  Report Type: Spontaneous
  Country: JP (occurrence: JP)
  Receive Date: 20140618
  Receipt Date: 20140618
  Transmission Date: 20141212
  Serious: Yes (Other)
  Sender: FDA-Public Use
  Company Number: JP-GLAXOSMITHKLINE-B1003761A

PATIENT
  Age: 72 Year
  Sex: Male

DRUGS (4)
  1. ZOVIRAX [Suspect]
     Indication: HERPES SIMPLEX
     Route: 065
  2. PREDONINE [Concomitant]
     Indication: PEMPHIGOID
     Dosage: 60MG PER DAY
     Route: 048
  3. ZOSYN [Concomitant]
     Indication: HERPES SIMPLEX
     Route: 042
  4. TEICOPLANIN [Concomitant]
     Indication: HERPES SIMPLEX
     Route: 042

REACTIONS (2)
  - Altered state of consciousness [Recovering/Resolving]
  - Toxic encephalopathy [Recovering/Resolving]
